FAERS Safety Report 6889381-7 (Version None)
Quarter: 2010Q3

REPORT INFORMATION
  Report Type: 
  Country: None (occurrence: None)
  Receive Date: 20100730
  Receipt Date: 20080304
  Transmission Date: 20110219
  Serious: No
  Sender: FDA-Public Use
  Company Number: US-PFIZER INC-2008017184

PATIENT
  Sex: Female
  Weight: 55.909 kg

DRUGS (8)
  1. LIPITOR [Suspect]
     Indication: BLOOD CHOLESTEROL INCREASED
  2. ACETAMINOPHEN AND CODEINE PHOSPHATE [Concomitant]
  3. NEXIUM [Concomitant]
     Indication: GASTROOESOPHAGEAL REFLUX DISEASE
  4. CENTRUM [Concomitant]
  5. CALCIUM [Concomitant]
     Indication: BONE DISORDER
  6. PREMARIN [Concomitant]
  7. XANAX [Concomitant]
     Indication: ANXIETY
  8. TIZANIDINE HYDROCHLORIDE [Concomitant]
     Indication: PAIN IN EXTREMITY

REACTIONS (5)
  - BLOOD CHOLESTEROL INCREASED [None]
  - BLOOD TRIGLYCERIDES ABNORMAL [None]
  - EYE DISORDER [None]
  - HIGH DENSITY LIPOPROTEIN INCREASED [None]
  - LIPIDS INCREASED [None]
